FAERS Safety Report 5907747-6 (Version None)
Quarter: 2008Q4

REPORT INFORMATION
  Report Type: 
  Country: None (occurrence: None)
  Receive Date: 20081003
  Receipt Date: 20080926
  Transmission Date: 20090506
  Serious: Yes (Hospitalization)
  Sender: FDA-Public Use
  Company Number: US-ASTRAZENECA-2008UW20479

PATIENT
  Age: 60 Year
  Sex: Female

DRUGS (7)
  1. ARIMIDEX [Suspect]
     Route: 048
     Dates: start: 20070801
  2. NEXIUM [Concomitant]
     Route: 048
  3. LEVOTHYROXINE SODIUM [Concomitant]
  4. ASPIRIN [Concomitant]
  5. CALCIUM [Concomitant]
  6. CENTRUM SILVER [Concomitant]
     Dosage: 1 TAB
  7. VITAMIN E [Concomitant]
     Indication: HOT FLUSH
     Dates: start: 20080924

REACTIONS (5)
  - BLOOD PRESSURE INCREASED [None]
  - HOT FLUSH [None]
  - NIGHT SWEATS [None]
  - OSTEOPOROSIS [None]
  - THYROIDECTOMY [None]
